FAERS Safety Report 7381089-7 (Version None)
Quarter: 2011Q1

REPORT INFORMATION
  Report Type: 
  Country: None (occurrence: None)
  Receive Date: 20110329
  Receipt Date: 20100618
  Transmission Date: 20110831
  Serious: No
  Sender: FDA-Public Use
  Company Number: US-AMGEN-KDL419364

PATIENT
  Age: 47 Year
  Sex: Male

DRUGS (9)
  1. DOXERCALCIFEROL [Concomitant]
  2. LANTHANUM CARBONATE [Concomitant]
  3. NEPHRO-CAPS [Concomitant]
  4. SENSIPAR [Suspect]
     Indication: HYPERPARATHYROIDISM SECONDARY
     Dosage: 30 MG, QD
     Dates: start: 20090724
  5. EPOGEN [Suspect]
     Indication: PRODUCT USED FOR UNKNOWN INDICATION
  6. ACETAMINOPHEN [Concomitant]
  7. DIGOXIN [Concomitant]
  8. HEPARIN SODIUM [Concomitant]
  9. ASPIRIN [Concomitant]

REACTIONS (6)
  - SKIN ULCER [None]
  - PIGMENTATION DISORDER [None]
  - STRESS [None]
  - SKIN DISCOLOURATION [None]
  - NERVOUSNESS [None]
  - PRURITUS [None]
